FAERS Safety Report 9625748 (Version 1)
Quarter: 2013Q4

REPORT INFORMATION
  Report Type: Spontaneous
  Country: BR (occurrence: BR)
  Receive Date: 20131016
  Receipt Date: 20131016
  Transmission Date: 20140711
  Serious: Yes (Hospitalization)
  Sender: FDA-Public Use
  Company Number: BR-SA-2013SA102972

PATIENT
  Sex: Female

DRUGS (4)
  1. LANTUS [Suspect]
     Indication: DIABETES MELLITUS
     Route: 058
  2. APIDRA [Suspect]
     Indication: DIABETES MELLITUS
     Route: 058
  3. DIAMICRON [Concomitant]
  4. JANUMET [Concomitant]

REACTIONS (2)
  - Urinary tract infection [Unknown]
  - Hyperglycaemia [Unknown]
